FAERS Safety Report 19239230 (Version 3)
Quarter: 2021Q2

REPORT INFORMATION
  Report Type: Report from Study
  Country: CN (occurrence: CN)
  Receive Date: 20210510
  Receipt Date: 20210610
  Transmission Date: 20210717
  Serious: Yes (Hospitalization)
  Sender: FDA-Public Use
  Company Number: CN-ROCHE-2823343

PATIENT
  Age: 76 Year
  Sex: Male
  Weight: 68.5 kg

DRUGS (38)
  1. OMEPRAZOLE. [Concomitant]
     Active Substance: OMEPRAZOLE
     Route: 042
     Dates: start: 20210408, end: 20210408
  2. SODIUM LACTATE RINGER^S [Concomitant]
     Route: 042
     Dates: start: 20210415, end: 20210415
  3. SODIUM LACTATE RINGER^S [Concomitant]
     Route: 042
     Dates: start: 20210423, end: 20210423
  4. SODIUM LACTATE RINGER^S [Concomitant]
     Route: 042
     Dates: start: 20210408, end: 20210408
  5. DIPHENHYDRAMINE HYDROCHLORIDE. [Concomitant]
     Active Substance: DIPHENHYDRAMINE HYDROCHLORIDE
     Route: 030
     Dates: start: 20210401, end: 20210401
  6. SODIUM LACTATE RINGER^S [Concomitant]
     Route: 042
     Dates: start: 20210401, end: 20210401
  7. SODIUM BICARBONATE. [Concomitant]
     Active Substance: SODIUM BICARBONATE
     Route: 042
     Dates: start: 20210330, end: 20210401
  8. DIPHENHYDRAMINE HYDROCHLORIDE. [Concomitant]
     Active Substance: DIPHENHYDRAMINE HYDROCHLORIDE
     Route: 030
     Dates: start: 20210415, end: 20210415
  9. SODIUM BICARBONATE. [Concomitant]
     Active Substance: SODIUM BICARBONATE
     Route: 042
     Dates: start: 20210401, end: 20210401
  10. DIPHENHYDRAMINE HYDROCHLORIDE. [Concomitant]
     Active Substance: DIPHENHYDRAMINE HYDROCHLORIDE
     Indication: PREMEDICATION
     Route: 030
     Dates: start: 20210423, end: 20210423
  11. ROSUVASTATIN CALCIUM. [Concomitant]
     Active Substance: ROSUVASTATIN CALCIUM
     Route: 048
     Dates: start: 201501
  12. NITROGLYCERIN. [Concomitant]
     Active Substance: NITROGLYCERIN
  13. ACETAMINOPHEN. [Concomitant]
     Active Substance: ACETAMINOPHEN
     Route: 048
     Dates: start: 20210416, end: 20210416
  14. SODIUM LACTATE RINGER^S [Concomitant]
     Indication: PROPHYLAXIS
     Route: 042
     Dates: start: 20210330, end: 20210401
  15. SODIUM LACTATE RINGER^S [Concomitant]
     Route: 042
     Dates: start: 20210416, end: 20210416
  16. SODIUM BICARBONATE. [Concomitant]
     Active Substance: SODIUM BICARBONATE
     Route: 042
     Dates: start: 20210408, end: 20210408
  17. METHYLPREDNISOLONE. [Concomitant]
     Active Substance: METHYLPREDNISOLONE
     Route: 042
     Dates: start: 20210423, end: 20210423
  18. METHYLPREDNISOLONE. [Concomitant]
     Active Substance: METHYLPREDNISOLONE
     Route: 042
     Dates: start: 20210408, end: 20210408
  19. TICAGRELOR. [Concomitant]
     Active Substance: TICAGRELOR
     Route: 048
     Dates: start: 201501
  20. OMEPRAZOLE. [Concomitant]
     Active Substance: OMEPRAZOLE
     Route: 042
     Dates: start: 20210415, end: 20210415
  21. METHYLPREDNISOLONE. [Concomitant]
     Active Substance: METHYLPREDNISOLONE
     Route: 042
     Dates: start: 20210401, end: 20210401
  22. BARBITAL [Concomitant]
     Active Substance: BARBITAL
     Indication: PREMEDICATION
     Route: 048
     Dates: start: 20210415, end: 20210415
  23. DALTEPARIN SODIUM [Concomitant]
     Active Substance: DALTEPARIN SODIUM
     Dosage: 5000 IU
     Route: 058
     Dates: start: 20210501
  24. RO7082859 (CD20/C3 T?CELL BISPECIFIC MAB) [Suspect]
     Active Substance: GLOFITAMAB
     Indication: DIFFUSE LARGE B-CELL LYMPHOMA REFRACTORY
     Dosage: DOSE LAST STUDY DRUG ADMIN PRIOR AE/SAE IS 30 MG?MOST RECENT DOSE OF STUDY DRUG PRIOR TO AE/SAE 23/A
     Route: 042
     Dates: start: 20210408
  25. OBINUTUZUMAB. [Suspect]
     Active Substance: OBINUTUZUMAB
     Indication: DIFFUSE LARGE B-CELL LYMPHOMA REFRACTORY
     Dosage: DOSE LAST STUDY DRUG ADMIN PRIOR AE/SAE IS 1000 MG?MOST RECENT DOSE OF STUDY DRUG PRIOR TO AE/SAE 01
     Route: 042
     Dates: start: 20210401
  26. OMEPRAZOLE. [Concomitant]
     Active Substance: OMEPRAZOLE
     Route: 042
     Dates: start: 20210423, end: 20210423
  27. SODIUM BICARBONATE. [Concomitant]
     Active Substance: SODIUM BICARBONATE
     Route: 042
     Dates: start: 20210415, end: 20210415
  28. COMPOUND PARACETAMOL [Concomitant]
     Route: 048
     Dates: start: 20210401, end: 20210401
  29. ACETAMINOPHEN. [Concomitant]
     Active Substance: ACETAMINOPHEN
     Route: 048
     Dates: start: 20210408, end: 20210408
  30. SODIUM LACTATE RINGER^S [Concomitant]
     Route: 042
     Dates: start: 20210330, end: 20210408
  31. METHYLPREDNISOLONE. [Concomitant]
     Active Substance: METHYLPREDNISOLONE
     Indication: PREMEDICATION
     Route: 042
     Dates: start: 20210415, end: 20210415
  32. ASPIRIN. [Concomitant]
     Active Substance: ASPIRIN
     Route: 048
     Dates: start: 201501
  33. OMEPRAZOLE. [Concomitant]
     Active Substance: OMEPRAZOLE
     Indication: PROPHYLAXIS
     Route: 042
     Dates: start: 20210330, end: 20210401
  34. INDOMETACIN [Concomitant]
     Active Substance: INDOMETHACIN
     Route: 054
     Dates: start: 20210416, end: 20210416
  35. COMPOUND PARACETAMOL [Concomitant]
     Indication: PREMEDICATION
     Route: 048
     Dates: start: 20210423, end: 20210423
  36. DIPHENHYDRAMINE HYDROCHLORIDE. [Concomitant]
     Active Substance: DIPHENHYDRAMINE HYDROCHLORIDE
     Route: 030
     Dates: start: 20210408, end: 20210408
  37. TICAGRELOR. [Concomitant]
     Active Substance: TICAGRELOR
     Route: 048
     Dates: start: 20210501
  38. METOPROLOL TARTRATE. [Concomitant]
     Active Substance: METOPROLOL TARTRATE
     Route: 048
     Dates: start: 20210501

REACTIONS (1)
  - Acute myocardial infarction [Recovered/Resolved with Sequelae]

NARRATIVE: CASE EVENT DATE: 20210430
